FAERS Safety Report 9892972 (Version 1)
Quarter: 2014Q1

REPORT INFORMATION
  Report Type: Report from Study
  Country: US (occurrence: US)
  Receive Date: 20140213
  Receipt Date: 20140213
  Transmission Date: 20141002
  Serious: Yes (Death)
  Sender: FDA-Public Use
  Company Number: US-ROCHE-1320071

PATIENT
  Sex: Female
  Weight: 65.83 kg

DRUGS (2)
  1. AVASTIN [Suspect]
     Indication: OVARIAN CANCER
     Dosage: 15MG/KG
     Route: 065
     Dates: start: 20120117
  2. AVASTIN [Suspect]
     Indication: LYMPHOMA

REACTIONS (2)
  - Death [Fatal]
  - Off label use [Unknown]
